FAERS Safety Report 6371317-9 (Version None)
Quarter: 2009Q3

REPORT INFORMATION
  Report Type: 
  Country: None (occurrence: None)
  Receive Date: 20090918
  Receipt Date: 20090909
  Transmission Date: 20100115
  Serious: Yes (Other)
  Sender: FDA-Public Use
  Company Number: 2009SP024222

PATIENT
  Age: 67 Year
  Sex: Male

DRUGS (3)
  1. NANDROLONE DECANOATE [Suspect]
     Indication: OSTEOPOROSIS PROPHYLAXIS
     Dosage: ; ONCE;
  2. RENITEC /00574901/ [Concomitant]
  3. PREDNISONE [Concomitant]

REACTIONS (2)
  - BLOOD PRESSURE DIASTOLIC INCREASED [None]
  - HYPERTENSION [None]
